FAERS Safety Report 25256174 (Version 1)
Quarter: 2025Q2

REPORT INFORMATION
  Report Type: Spontaneous
  Country: US (occurrence: US)
  Receive Date: 20250430
  Receipt Date: 20250430
  Transmission Date: 20250717
  Serious: Yes (Other)
  Sender: AMGEN
  Company Number: US-AMGEN-USASP2025080652

PATIENT
  Age: 51 Year
  Sex: Female

DRUGS (4)
  1. PREDNISONE [Suspect]
     Active Substance: PREDNISONE
     Indication: Immunosuppressant drug therapy
     Route: 065
  2. RITUXIMAB [Suspect]
     Active Substance: RITUXIMAB
     Indication: Glomerulonephritis membranous
     Route: 065
  3. MYCOPHENOLATE MOFETIL [Concomitant]
     Active Substance: MYCOPHENOLATE MOFETIL
     Indication: Immunosuppressant drug therapy
  4. TACROLIMUS [Concomitant]
     Active Substance: TACROLIMUS
     Indication: Immunosuppressant drug therapy

REACTIONS (8)
  - Glomerulonephritis membranous [Not Recovered/Not Resolved]
  - Kidney fibrosis [Unknown]
  - Renal tubular atrophy [Unknown]
  - Ureteric stenosis [Unknown]
  - Acute kidney injury [Unknown]
  - Kidney transplant rejection [Unknown]
  - Glomerulosclerosis [Unknown]
  - Off label use [Unknown]
